FAERS Safety Report 7550194-4 (Version None)
Quarter: 2011Q2

REPORT INFORMATION
  Report Type: 
  Country: None (occurrence: None)
  Receive Date: 20110615
  Receipt Date: 20110608
  Transmission Date: 20111010
  Serious: Yes (Other)
  Sender: FDA-Public Use
  Company Number: BR-PFIZER INC-2011124921

PATIENT
  Age: 68 Year
  Sex: Male
  Weight: 79 kg

DRUGS (5)
  1. CARDURA [Suspect]
     Indication: BLADDER DISORDER
     Dosage: 4 MG, 1X/DAY (1 TABLET PER DAY)
     Route: 048
     Dates: start: 20090101
  2. FLUTICAN [Concomitant]
     Indication: NASAL POLYPS
  3. FLUTICAN [Concomitant]
     Indication: ANOSMIA
  4. RETEMIC [Concomitant]
     Indication: PROSTATE CANCER
     Dosage: UNK
     Dates: start: 20090101
  5. FLUTICAN [Concomitant]
     Indication: SINUSITIS
     Dosage: UNK
     Dates: start: 20090101

REACTIONS (3)
  - CONFUSIONAL STATE [None]
  - COLOSTOMY [None]
  - MEDICATION RESIDUE [None]
